FAERS Safety Report 9557022 (Version 1)
Quarter: 2013Q3

REPORT INFORMATION
  Report Type: Spontaneous
  Country: US (occurrence: US)
  Receive Date: 20130926
  Receipt Date: 20130926
  Transmission Date: 20140515
  Serious: No
  Sender: FDA-Public Use
  Company Number: US-TARO-2013P1002810

PATIENT
  Age: 7 Year
  Sex: Female

DRUGS (1)
  1. MALATHION LOTION USP 0.5% [Suspect]
     Dates: start: 201302

REACTIONS (1)
  - Application site pain [Recovered/Resolved]
